FAERS Safety Report 5062641-0 (Version None)
Quarter: 2006Q3

REPORT INFORMATION
  Report Type: 
  Country: None (occurrence: None)
  Receive Date: 20060724
  Receipt Date: 20060711
  Transmission Date: 20061208
  Serious: Yes (Hospitalization)
  Sender: FDA-Public Use
  Company Number: 221141

PATIENT
  Age: 65 Year
  Sex: Male

DRUGS (10)
  1. AVASTIN [Suspect]
     Indication: COLON CANCER
     Dosage: 470 MG, Q3W, INTRAVENOUS
     Route: 042
     Dates: start: 20050913, end: 20060626
  2. AVASTIN [Suspect]
  3. CAPECITABINE(CAPECITABINE) [Suspect]
     Indication: COLON CANCER
     Dosage: 1650 MG, BID, ORAL
     Route: 048
     Dates: start: 20050913, end: 20060626
  4. OXALIPLATIN(OXALIPLATIN) [Suspect]
     Indication: COLON CANCER
     Dosage: 130 MG, Q3W, INTRAVENOUS
     Route: 042
     Dates: start: 20050913, end: 20060626
  5. MAXOLON [Concomitant]
  6. PANADOL (ACETAMINOPHEN) [Concomitant]
  7. OMEPRAZOLE [Concomitant]
  8. QUINAPRIL [Concomitant]
  9. IRBESARTAN [Concomitant]
  10. AMLODIPINE BESYLATE [Concomitant]

REACTIONS (12)
  - ACUTE PRERENAL FAILURE [None]
  - BACTERIA STOOL IDENTIFIED [None]
  - CAMPYLOBACTER INFECTION [None]
  - DEHYDRATION [None]
  - DIARRHOEA [None]
  - DIZZINESS [None]
  - DRUG HYPERSENSITIVITY [None]
  - DYSPNOEA [None]
  - GASTROINTESTINAL STOMA COMPLICATION [None]
  - NECK PAIN [None]
  - PAIN IN EXTREMITY [None]
  - RENAL FAILURE ACUTE [None]
